FAERS Safety Report 16814860 (Version 1)
Quarter: 2019Q3

REPORT INFORMATION
  Report Type: Spontaneous
  Country: US (occurrence: US)
  Receive Date: 20190725
  Receipt Date: 20190725
  Transmission Date: 20191005
  Serious: No
  Sender: FDA-Public Use
  Company Number: None

PATIENT
  Age: 82 Year
  Sex: Male

DRUGS (1)
  1. ABIRATERONE  250MG TAB [Suspect]
     Active Substance: ABIRATERONE
     Route: 048
     Dates: start: 20190701

REACTIONS (2)
  - Blood pressure decreased [None]
  - Heart rate increased [None]

NARRATIVE: CASE EVENT DATE: 20190701
